FAERS Safety Report 26144951 (Version 1)
Quarter: 2025Q4

REPORT INFORMATION
  Report Type: Spontaneous
  Country: CA (occurrence: CA)
  Receive Date: 20251211
  Receipt Date: 20251211
  Transmission Date: 20260118
  Serious: Yes (Hospitalization)
  Sender: TEVA
  Company Number: CA-TEVA-VS-3400990

PATIENT
  Age: 10 Month
  Sex: Female

DRUGS (5)
  1. CARBOPLATIN [Suspect]
     Active Substance: CARBOPLATIN
     Indication: Product used for unknown indication
     Dosage: CARBOPLATIN INJECTION, DOSE FORM: SOLUTION INTRAVENOUS
     Route: 042
  2. EMEND [Concomitant]
     Active Substance: APREPITANT
     Indication: Product used for unknown indication
  3. DEXAMETHASONE [Concomitant]
     Active Substance: DEXAMETHASONE
     Indication: Product used for unknown indication
     Dosage: DOSE FORM: LIQUID INTRA-ARTICULAR
  4. DOXORUBICIN [Suspect]
     Active Substance: DOXORUBICIN
     Indication: Product used for unknown indication
     Dosage: DOXORUBICIN INJECTION, DOSE FORM: SOLUTION INTRAVENOUS
     Route: 042
  5. CYCLOPHOSPHAMIDE [Suspect]
     Active Substance: CYCLOPHOSPHAMIDE
     Indication: Product used for unknown indication
     Route: 042

REACTIONS (1)
  - Febrile neutropenia [Recovered/Resolved]
